FAERS Safety Report 4561133-2 (Version None)
Quarter: 2005Q1

REPORT INFORMATION
  Report Type: 
  Country: None (occurrence: None)
  Receive Date: 20050121
  Receipt Date: 20041210
  Transmission Date: 20050727
  Serious: Yes (Hospitalization)
  Sender: FDA-Public Use
  Company Number: RENA-11224

PATIENT
  Age: 56 Year
  Sex: Female
  Weight: 55.5 kg

DRUGS (13)
  1. RENAGEL [Suspect]
     Indication: HYPERPHOSPHATAEMIA
     Dosage: 500 MG TID PO
     Route: 048
     Dates: start: 20040622
  2. LASIX [Concomitant]
  3. ASPIRIN [Concomitant]
  4. RISUMIC (AMEZINIUM METILSULFATE) [Concomitant]
  5. MERISLON (BETAHISTINE HYDROCHLORIDE) [Concomitant]
  6. LENDORMIN [Concomitant]
  7. PURSENNID [Concomitant]
  8. EBASTEL [Concomitant]
  9. KETAS [Concomitant]
  10. OMEPRAL [Concomitant]
  11. GASTROM [Concomitant]
  12. MUCOSTA [Concomitant]
  13. OXAROL (MAXACALCITOL) [Concomitant]

REACTIONS (4)
  - BLOOD PRESSURE DIASTOLIC INCREASED [None]
  - GASTROINTESTINAL PERFORATION [None]
  - HEART RATE INCREASED [None]
  - RECTAL PERFORATION [None]
